FAERS Safety Report 6589710-8 (Version None)
Quarter: 2010Q1

REPORT INFORMATION
  Report Type: 
  Country: None (occurrence: None)
  Receive Date: 20100219
  Receipt Date: 20100210
  Transmission Date: 20100710
  Serious: Yes (Hospitalization)
  Sender: FDA-Public Use
  Company Number: 2005BI015484

PATIENT
  Age: 53 Year
  Sex: Female
  Weight: 54 kg

DRUGS (10)
  1. AVONEX [Suspect]
     Indication: MULTIPLE SCLEROSIS
     Route: 030
     Dates: start: 20040601, end: 20041101
  2. AVONEX [Suspect]
     Route: 030
     Dates: start: 20050201, end: 20050201
  3. AVONEX [Suspect]
     Route: 030
     Dates: start: 20050301, end: 20050301
  4. AVONEX [Suspect]
     Route: 030
     Dates: start: 20050401, end: 20050601
  5. AVONEX [Suspect]
     Route: 030
     Dates: start: 20050101, end: 20070101
  6. AVONEX [Suspect]
     Route: 030
     Dates: start: 20030801
  7. AVONEX [Suspect]
     Route: 030
     Dates: start: 20030301, end: 20030801
  8. ZANAFLEX [Concomitant]
  9. VICODIN [Concomitant]
  10. M.V.I. [Concomitant]

REACTIONS (14)
  - ARTHRITIS [None]
  - ARTHROPATHY [None]
  - BACK PAIN [None]
  - CONSTIPATION [None]
  - GAIT DISTURBANCE [None]
  - HYPERTENSION [None]
  - INTERVERTEBRAL DISC PROTRUSION [None]
  - LUMBAR SPINAL STENOSIS [None]
  - MULTIPLE SCLEROSIS [None]
  - MUSCLE SPASMS [None]
  - MUSCULAR WEAKNESS [None]
  - PAIN [None]
  - SPINAL DISORDER [None]
  - URINARY RETENTION [None]
